FAERS Safety Report 9539050 (Version 1)
Quarter: 2013Q3

REPORT INFORMATION
  Report Type: Spontaneous
  Country: NO (occurrence: NO)
  Receive Date: 20130920
  Receipt Date: 20130920
  Transmission Date: 20140515
  Serious: Yes (Hospitalization)
  Sender: FDA-Public Use
  Company Number: NO-JNJFOC-20130906955

PATIENT
  Age: 52 Year
  Sex: Female

DRUGS (7)
  1. SIMPONI [Suspect]
     Indication: PSORIATIC ARTHROPATHY
     Route: 058
     Dates: start: 20130529, end: 20130529
  2. DILTIAZEM [Concomitant]
     Route: 065
  3. ARCOXIA [Concomitant]
     Route: 065
  4. SIRDALUD [Concomitant]
     Route: 065
  5. PRESTARIUM [Concomitant]
     Route: 065
  6. TAVEGYL [Concomitant]
     Route: 065
  7. RANITIDINE [Concomitant]
     Route: 065

REACTIONS (2)
  - Hemiparesis [Recovering/Resolving]
  - VIIth nerve paralysis [Recovering/Resolving]
